FAERS Safety Report 6440005-2 (Version None)
Quarter: 2009Q4

REPORT INFORMATION
  Report Type: 
  Country: None (occurrence: None)
  Receive Date: 20091113
  Receipt Date: 20091106
  Transmission Date: 20100525
  Serious: Yes (Death)
  Sender: FDA-Public Use
  Company Number: US-BAXTER-2009BH017120

PATIENT
  Sex: Female

DRUGS (3)
  1. CYCLOPHOSPHAMIDE [Suspect]
     Indication: BREAST CANCER STAGE III
     Route: 042
  2. FLUOROURACIL [Suspect]
     Indication: BREAST CANCER STAGE III
     Route: 042
  3. DOXORUBICIN HYDROCHLORIDE [Suspect]
     Indication: BREAST CANCER STAGE III
     Route: 042

REACTIONS (2)
  - NEUTROPENIA [None]
  - SEPSIS [None]
